FAERS Safety Report 9005158 (Version 1)
Quarter: 2013Q1

REPORT INFORMATION
  Report Type: Spontaneous
  Country: US (occurrence: None)
  Receive Date: 20130107
  Receipt Date: 20130107
  Transmission Date: 20140127
  Serious: Yes (Other)
  Sender: FDA-Public Use
  Company Number: None

PATIENT
  Sex: Female
  Weight: 62.6 kg

DRUGS (1)
  1. ESCITALOPRAM 10 MG [Suspect]
     Indication: ANXIETY
     Dosage: 1 TAB QEVE PO/047
     Route: 048
     Dates: start: 20120701, end: 20120723

REACTIONS (6)
  - Anxiety [None]
  - Psychomotor hyperactivity [None]
  - Insomnia [None]
  - Lethargy [None]
  - Mood swings [None]
  - Product substitution issue [None]
